FAERS Safety Report 20043558 (Version 14)
Quarter: 2025Q1

REPORT INFORMATION
  Report Type: Report from Study
  Country: JP (occurrence: JP)
  Receive Date: 20211108
  Receipt Date: 20250308
  Transmission Date: 20250409
  Serious: Yes (Other)
  Sender: ABBVIE
  Company Number: JP-TAKEDA-2021TJP114041

PATIENT
  Age: 60 Year
  Sex: Male

DRUGS (15)
  1. LEUPROLIDE ACETATE [Suspect]
     Active Substance: LEUPROLIDE ACETATE
     Indication: Bulbospinal muscular atrophy congenital
     Dosage: 11.25 MILLIGRAM, Q3MONTHS
     Route: 058
     Dates: start: 20171026
  2. TAUNUS AQUA [Concomitant]
     Indication: Rhinitis allergic
     Route: 045
     Dates: start: 20200326, end: 20200417
  3. HYDROCHLOROTHIAZIDE\LOSARTAN POTASSIUM [Concomitant]
     Active Substance: HYDROCHLOROTHIAZIDE\LOSARTAN POTASSIUM
     Indication: Product used for unknown indication
     Route: 065
  4. LOXOPROFEN SODIUM [Concomitant]
     Active Substance: LOXOPROFEN SODIUM
     Indication: Bulbospinal muscular atrophy congenital
     Route: 065
     Dates: start: 20181119, end: 20210711
  5. LOXOPROFEN SODIUM [Concomitant]
     Active Substance: LOXOPROFEN SODIUM
     Indication: Bulbospinal muscular atrophy congenital
     Route: 065
     Dates: start: 20190601, end: 20200318
  6. LOXOPROFEN SODIUM [Concomitant]
     Active Substance: LOXOPROFEN SODIUM
     Indication: Bulbospinal muscular atrophy congenital
     Route: 065
     Dates: end: 20210711
  7. BILASTINE [Concomitant]
     Active Substance: BILASTINE
     Indication: Conjunctivitis allergic
     Route: 065
     Dates: start: 20190227, end: 20190803
  8. BILASTINE [Concomitant]
     Active Substance: BILASTINE
     Indication: Conjunctivitis allergic
     Route: 065
     Dates: start: 20200326, end: 20200417
  9. BILASTINE [Concomitant]
     Active Substance: BILASTINE
     Indication: Conjunctivitis allergic
     Route: 065
     Dates: start: 20210319, end: 20210521
  10. PATANOL [Concomitant]
     Active Substance: OLOPATADINE HYDROCHLORIDE
     Indication: Conjunctivitis allergic
     Route: 047
     Dates: start: 20190227, end: 20190803
  11. PATANOL [Concomitant]
     Active Substance: OLOPATADINE HYDROCHLORIDE
     Indication: Conjunctivitis allergic
     Route: 047
     Dates: start: 20200326, end: 20200417
  12. LOXOPROFEN SODIUM [Concomitant]
     Active Substance: LOXOPROFEN SODIUM
     Indication: Bulbospinal muscular atrophy congenital
     Route: 065
     Dates: start: 20220818, end: 20230203
  13. LOXOPROFEN SODIUM [Concomitant]
     Active Substance: LOXOPROFEN SODIUM
     Indication: Bulbospinal muscular atrophy congenital
     Route: 065
     Dates: start: 20220217, end: 20220308
  14. LOXOPROFEN SODIUM [Concomitant]
     Active Substance: LOXOPROFEN SODIUM
     Indication: Bulbospinal muscular atrophy congenital
     Route: 065
     Dates: start: 20230816
  15. LOXOPROFEN [Concomitant]
     Active Substance: LOXOPROFEN
     Indication: Bulbospinal muscular atrophy congenital
     Route: 065
     Dates: start: 20190601, end: 20200318

REACTIONS (7)
  - Hyperkalaemia [Recovered/Resolved]
  - Diabetes mellitus [Recovering/Resolving]
  - Foot fracture [Recovered/Resolved]
  - Accident [Recovered/Resolved]
  - COVID-19 [Recovered/Resolved]
  - Dermatophytosis of nail [Recovered/Resolved]
  - Dry skin [Recovered/Resolved]

NARRATIVE: CASE EVENT DATE: 20180315
